FAERS Safety Report 7326795-5 (Version None)
Quarter: 2011Q1

REPORT INFORMATION
  Report Type: 
  Country: None (occurrence: None)
  Receive Date: 20110302
  Receipt Date: 20091109
  Transmission Date: 20110831
  Serious: No
  Sender: FDA-Public Use
  Company Number: US-PFIZER INC-2009273004

PATIENT
  Sex: Male
  Weight: 93.878 kg

DRUGS (1)
  1. DILANTIN [Suspect]
     Dosage: 400 MG, 1X/DAY
     Dates: start: 19810101

REACTIONS (6)
  - PRURITUS [None]
  - MUSCLE SPASMS [None]
  - BALANCE DISORDER [None]
  - HYPOAESTHESIA [None]
  - HERNIA [None]
  - CLUMSINESS [None]
